FAERS Safety Report 7329122-2 (Version None)
Quarter: 2011Q1

REPORT INFORMATION
  Report Type: 
  Country: None (occurrence: None)
  Receive Date: 20110303
  Receipt Date: 20110224
  Transmission Date: 20110831
  Serious: Yes (Other)
  Sender: FDA-Public Use
  Company Number: DE-TEVA-268747GER

PATIENT
  Age: 1 Year
  Sex: Female

DRUGS (3)
  1. ACICLOVIR-RATIOPHARM 500 MG [Suspect]
     Indication: HERPES SIMPLEX OPHTHALMIC
  2. OFLOXACIN [Concomitant]
     Indication: HERPES SIMPLEX OPHTHALMIC
     Route: 061
  3. ACYCLOVIR [Concomitant]
     Indication: HERPES SIMPLEX OPHTHALMIC
     Route: 061

REACTIONS (3)
  - INJECTION SITE PAIN [None]
  - INCORRECT ROUTE OF DRUG ADMINISTRATION [None]
  - INJECTION SITE SWELLING [None]
